FAERS Safety Report 25046486 (Version 1)
Quarter: 2025Q1

REPORT INFORMATION
  Report Type: Spontaneous
  Country: GR (occurrence: GR)
  Receive Date: 20250306
  Receipt Date: 20250306
  Transmission Date: 20250409
  Serious: Yes (Other)
  Sender: UPSHER SMITH LABORATORIES
  Company Number: GR-UPSHER-SMITH LABORATORIES, LLC-20250200646

PATIENT
  Age: 38 Year
  Sex: Male

DRUGS (2)
  1. TESTOSTERONE [Suspect]
     Active Substance: TESTOSTERONE
     Indication: Blood testosterone decreased
     Route: 065
  2. TESTOSTERONE [Suspect]
     Active Substance: TESTOSTERONE
     Route: 030

REACTIONS (6)
  - Loss of consciousness [Recovering/Resolving]
  - Disturbance in attention [Recovering/Resolving]
  - Blood testosterone increased [Recovering/Resolving]
  - Myalgia [Recovering/Resolving]
  - Anxiety [Recovering/Resolving]
  - Fatigue [Recovering/Resolving]
